FAERS Safety Report 9791409 (Version 2)
Quarter: 2014Q1

REPORT INFORMATION
  Report Type: Spontaneous
  Country: US (occurrence: US)
  Receive Date: 20140101
  Receipt Date: 20140304
  Transmission Date: 20141002
  Serious: No
  Sender: FDA-Public Use
  Company Number: US-009507513-1312USA009152

PATIENT
  Age: 59 Year
  Sex: Female
  Weight: 68.93 kg

DRUGS (6)
  1. OXYTROL FOR WOMEN [Suspect]
     Indication: HYPERTONIC BLADDER
     Dosage: 1 DF, Q4D
     Route: 062
     Dates: start: 20131205
  2. AVONEX [Concomitant]
     Indication: MULTIPLE SCLEROSIS
     Dosage: UNK, UNKNOWN
  3. METFORMIN [Concomitant]
     Indication: DIABETES MELLITUS
     Dosage: UNK, UNKNOWN
  4. CODEINE [Concomitant]
     Indication: PAIN
     Dosage: UNK, UNKNOWN
  5. CODEINE [Concomitant]
     Indication: OSTEONECROSIS
  6. CODEINE [Concomitant]
     Indication: FIBROMYALGIA

REACTIONS (7)
  - Pain [Unknown]
  - Condition aggravated [Unknown]
  - Nocturia [Unknown]
  - Pollakiuria [Unknown]
  - Rash erythematous [Unknown]
  - Drug ineffective [Unknown]
  - Product packaging quantity issue [Unknown]
